FAERS Safety Report 5878478-6 (Version None)
Quarter: 2008Q3

REPORT INFORMATION
  Report Type: 
  Country: None (occurrence: None)
  Receive Date: 20080911
  Receipt Date: 20080715
  Transmission Date: 20090109
  Serious: No
  Sender: FDA-Public Use
  Company Number: US-AMGEN-KDL294872

PATIENT

DRUGS (2)
  1. NEUPOGEN [Suspect]
     Indication: NEUTROPENIA
  2. CLOZAPINE [Concomitant]

REACTIONS (1)
  - WHITE BLOOD CELL COUNT INCREASED [None]
